FAERS Safety Report 20962528 (Version 1)
Quarter: 2022Q2

REPORT INFORMATION
  Report Type: Spontaneous
  Country: TN (occurrence: TN)
  Receive Date: 20220615
  Receipt Date: 20220615
  Transmission Date: 20220720
  Serious: Yes (Other)
  Sender: FDA-Public Use
  Company Number: TN-002147023-NVSC2022TN133951

PATIENT

DRUGS (3)
  1. TERBINAFINE [Suspect]
     Active Substance: TERBINAFINE
     Indication: Onychomycosis
     Dosage: UNK
     Route: 048
  2. TERBINAFINE [Suspect]
     Active Substance: TERBINAFINE
     Dosage: UNK
     Route: 061
  3. INSULIN NOS [Concomitant]
     Active Substance: INSULIN NOS
     Indication: Diabetes mellitus
     Dosage: UNK
     Route: 065

REACTIONS (1)
  - Acute generalised exanthematous pustulosis [Recovered/Resolved]
